FAERS Safety Report 9713947 (Version 1)
Quarter: 2013Q4

REPORT INFORMATION
  Report Type: Spontaneous
  Country: US (occurrence: US)
  Receive Date: 20131126
  Receipt Date: 20131126
  Transmission Date: 20140711
  Serious: No
  Sender: FDA-Public Use
  Company Number: US-GILEAD-2008-0018219

PATIENT
  Sex: Female
  Weight: 131.54 kg

DRUGS (13)
  1. LETAIRIS [Suspect]
     Indication: PULMONARY ARTERIAL HYPERTENSION
     Route: 048
     Dates: start: 20080801
  2. LASIX [Concomitant]
     Dosage: AS DIRECTED
     Route: 048
  3. GLIPIZIDE [Concomitant]
     Dosage: AS DIRECTED
     Route: 048
  4. ALBUTEROL [Concomitant]
     Dosage: AS DIRECTED
  5. REVATIO [Concomitant]
     Dosage: AS DIRECTED
     Route: 048
  6. DIOVAN [Concomitant]
     Dosage: AS DIRECTED
     Route: 048
  7. CIMETIDINE [Concomitant]
     Dosage: AS DIRECTED
     Route: 048
  8. FELODIPINE ER [Concomitant]
     Dosage: AS DIRECTED
     Route: 048
  9. CELEXA [Concomitant]
     Dosage: AS DIRECTED
     Route: 048
  10. ALEVE [Concomitant]
     Dosage: AS DIRECTED
     Route: 048
  11. POTASSIUM [Concomitant]
     Dosage: AS DIRECTED
     Route: 048
  12. ASPIRIN [Concomitant]
     Dosage: AS DIRECTED
     Route: 048
  13. COREG [Concomitant]
     Dosage: AS DIRECTED
     Route: 048

REACTIONS (2)
  - Erythema [None]
  - Local swelling [None]
